FAERS Safety Report 6370305-6 (Version None)
Quarter: 2009Q3

REPORT INFORMATION
  Report Type: 
  Country: None (occurrence: None)
  Receive Date: 20090923
  Receipt Date: 20090722
  Transmission Date: 20100115
  Serious: No
  Sender: FDA-Public Use
  Company Number: US-BAYER-200919361NA

PATIENT
  Sex: Female

DRUGS (1)
  1. YAZ [Suspect]
     Indication: HORMONE LEVEL ABNORMAL
     Route: 048
     Dates: start: 20090201

REACTIONS (7)
  - ABNORMAL WITHDRAWAL BLEEDING [None]
  - CRYING [None]
  - DYSPNOEA EXERTIONAL [None]
  - INSOMNIA [None]
  - MALAISE [None]
  - NO ADVERSE EVENT [None]
  - WEIGHT INCREASED [None]
